FAERS Safety Report 19126110 (Version 1)
Quarter: 2021Q2

REPORT INFORMATION
  Report Type: Report from Study
  Country: MX (occurrence: MX)
  Receive Date: 20210412
  Receipt Date: 20210412
  Transmission Date: 20210717
  Serious: Yes (Death, Other)
  Sender: FDA-Public Use
  Company Number: MX-TAKEDA-2021TJP014138

PATIENT
  Age: 76 Year
  Sex: Female
  Weight: 55 kg

DRUGS (1)
  1. PIOGLITAZONE. [Suspect]
     Active Substance: PIOGLITAZONE
     Indication: DIABETES MELLITUS
     Dosage: UNK
     Route: 065
     Dates: start: 20190304

REACTIONS (5)
  - Constipation [Unknown]
  - Candida infection [Unknown]
  - Hypertension [Unknown]
  - Cardiac disorder [Unknown]
  - Death [Fatal]
